FAERS Safety Report 10242409 (Version 2)
Quarter: 2014Q2

REPORT INFORMATION
  Report Type: Spontaneous
  Country: JP (occurrence: JP)
  Receive Date: 20140617
  Receipt Date: 20140623
  Transmission Date: 20141212
  Serious: Yes (Hospitalization)
  Sender: FDA-Public Use
  Company Number: JP-PFIZER INC-2014162967

PATIENT
  Age: 64 Year
  Sex: Male

DRUGS (3)
  1. ALDACTONE A [Suspect]
     Dosage: 75 MG, DAILY
     Route: 048
  2. SPIRONOLACTONE [Suspect]
     Dosage: 25 MG, DAILY
     Route: 048
  3. LASIX [Concomitant]
     Dosage: UNK

REACTIONS (1)
  - Tooth disorder [Recovered/Resolved]
